FAERS Safety Report 17916406 (Version 1)
Quarter: 2020Q2

REPORT INFORMATION
  Report Type: Report from Study
  Country: ES (occurrence: ES)
  Receive Date: 20200619
  Receipt Date: 20200619
  Transmission Date: 20200714
  Serious: Yes (Disabling)
  Sender: FDA-Public Use
  Company Number: ES-ROCHE-2615023

PATIENT
  Age: 36 Year
  Sex: Female

DRUGS (3)
  1. POLARAMINE [Concomitant]
     Active Substance: DEXCHLORPHENIRAMINE MALEATE
     Indication: PRODUCT USED FOR UNKNOWN INDICATION
     Route: 065
  2. TAXOL [Concomitant]
     Active Substance: PACLITAXEL
     Indication: HER2 POSITIVE BREAST CANCER
  3. HERCEPTIN [Suspect]
     Active Substance: TRASTUZUMAB
     Indication: HER2 POSITIVE BREAST CANCER
     Route: 065

REACTIONS (7)
  - Fatigue [Unknown]
  - Onychomadesis [Unknown]
  - Injection site bruising [Unknown]
  - Alopecia [Unknown]
  - Polyuria [Unknown]
  - Procedural pain [Not Recovered/Not Resolved]
  - Injection site pain [Unknown]
